FAERS Safety Report 7479742-X (Version None)
Quarter: 2011Q2

REPORT INFORMATION
  Report Type: 
  Country: None (occurrence: None)
  Receive Date: 20110513
  Receipt Date: 20110505
  Transmission Date: 20111010
  Serious: Yes (Death)
  Sender: FDA-Public Use
  Company Number: PL-GENENTECH-318700

PATIENT

DRUGS (5)
  1. RITUXAN [Suspect]
     Dosage: UNK
     Route: 065
  2. CYKLOFOSFAMID [Concomitant]
     Indication: LYMPHOCYTIC LEUKAEMIA
     Dosage: UNK
  3. RITUXAN [Suspect]
     Dosage: UNK
     Route: 065
  4. FLUDARABINA [Concomitant]
     Indication: LYMPHOCYTIC LEUKAEMIA
     Dosage: UNK
  5. RITUXAN [Suspect]
     Indication: LYMPHOCYTIC LEUKAEMIA
     Dosage: UNK
     Route: 065

REACTIONS (2)
  - DIARRHOEA [None]
  - PULMONARY OEDEMA [None]
